FAERS Safety Report 5377583-0 (Version None)
Quarter: 2007Q3

REPORT INFORMATION
  Report Type: 
  Country: None (occurrence: None)
  Receive Date: 20070703
  Receipt Date: 20070621
  Transmission Date: 20080115
  Serious: Yes (Other)
  Sender: FDA-Public Use
  Company Number: IE-PFIZER INC-2007043095

PATIENT
  Age: 47 Year
  Sex: Female
  Weight: 114 kg

DRUGS (4)
  1. CHAMPIX [Suspect]
     Indication: SMOKING CESSATION THERAPY
     Route: 048
     Dates: start: 20070220, end: 20070404
  2. VENTOLIN [Concomitant]
     Route: 048
  3. SPIRIVA [Concomitant]
     Route: 048
  4. SERETIDE [Concomitant]
     Route: 048

REACTIONS (2)
  - RASH [None]
  - SWELLING FACE [None]
